FAERS Safety Report 6942432-3 (Version None)
Quarter: 2010Q3

REPORT INFORMATION
  Report Type: 
  Country: None (occurrence: None)
  Receive Date: 20100826
  Receipt Date: 20100813
  Transmission Date: 20110219
  Serious: Yes (Hospitalization)
  Sender: FDA-Public Use
  Company Number: PHHY2010RU27485

PATIENT
  Age: 57 Year
  Sex: Male

DRUGS (1)
  1. GLEEVEC [Suspect]
     Indication: CHRONIC MYELOID LEUKAEMIA
     Dosage: 400 MG DAILY
     Route: 048
     Dates: start: 20090201, end: 20100429

REACTIONS (4)
  - ALVEOLITIS ALLERGIC [None]
  - DYSPNOEA EXERTIONAL [None]
  - PYREXIA [None]
  - RESPIRATORY FAILURE [None]
